FAERS Safety Report 8620216-8 (Version None)
Quarter: 2012Q3

REPORT INFORMATION
  Report Type: 
  Country: None (occurrence: None)
  Receive Date: 20120824
  Receipt Date: 20120822
  Transmission Date: 20120928
  Serious: Yes (Other)
  Sender: FDA-Public Use
  Company Number: PHHY2012BR063947

PATIENT
  Sex: Female

DRUGS (4)
  1. GLYBURIDE [Concomitant]
  2. METFORMIN HCL [Concomitant]
     Indication: DIABETES MELLITUS
     Dosage: 1 DF, DAILY
     Dates: start: 20080101
  3. RASILEZ [Suspect]
     Dosage: 300 MG, UNK
  4. BETAHISTINE DIHYDROCHLORIDE [Concomitant]
     Indication: LABYRINTHITIS
     Dosage: 2 DF, DAILY

REACTIONS (4)
  - BLOOD PRESSURE FLUCTUATION [None]
  - BLOOD PRESSURE DECREASED [None]
  - MALAISE [None]
  - TREMOR [None]
